FAERS Safety Report 14194413 (Version 2)
Quarter: 2018Q1

REPORT INFORMATION
  Report Type: Spontaneous
  Country: US (occurrence: US)
  Receive Date: 20171116
  Receipt Date: 20180111
  Transmission Date: 20180508
  Serious: Yes (Other)
  Sender: FDA-Public Use
  Company Number: US-PFIZER INC-2017492061

PATIENT
  Sex: Female

DRUGS (1)
  1. NARDIL [Suspect]
     Active Substance: PHENELZINE SULFATE
     Indication: DEPRESSION
     Dosage: UNK

REACTIONS (1)
  - Suicidal ideation [Unknown]
